FAERS Safety Report 22823584 (Version 2)
Quarter: 2024Q3

REPORT INFORMATION
  Report Type: Spontaneous
  Country: EG (occurrence: EG)
  Receive Date: 20230815
  Receipt Date: 20240805
  Transmission Date: 20241017
  Serious: Yes (Hospitalization)
  Sender: PFIZER
  Company Number: EG-PFIZER INC-PV202300138193

PATIENT
  Age: 37 Year
  Sex: Female

DRUGS (4)
  1. TYGACIL [Suspect]
     Active Substance: TIGECYCLINE
     Indication: Lower respiratory tract infection
     Dosage: 50 MG, 2X/DAY (2 VIALS)
     Route: 042
     Dates: start: 20230201
  2. DIFLUCAN [Suspect]
     Active Substance: FLUCONAZOLE
     Indication: Lower respiratory tract infection
     Dosage: 200 MG, 1X/DAY
     Route: 042
     Dates: start: 20230223
  3. WARFARIN SODIUM [Concomitant]
     Active Substance: WARFARIN SODIUM
     Indication: Anticoagulant therapy
     Dosage: 1 MG, 1X/DAY
     Route: 048
     Dates: start: 20230201
  4. MEROPENEM [Concomitant]
     Active Substance: MEROPENEM
     Indication: Lower respiratory tract infection
     Dosage: 2 G, 2X/DAY
     Route: 042
     Dates: start: 20230201, end: 20230221

REACTIONS (1)
  - Hepatic enzyme increased [Recovering/Resolving]
